FAERS Safety Report 10678611 (Version 5)
Quarter: 2019Q1

REPORT INFORMATION
  Report Type: Spontaneous
  Country: US (occurrence: US)
  Receive Date: 20141229
  Receipt Date: 20190102
  Transmission Date: 20190417
  Serious: No
  Sender: FDA-Public Use
  Company Number: US-PFIZER INC-2014268230

PATIENT
  Age: 76 Year
  Sex: Female

DRUGS (19)
  1. VITAMIN D2 [Concomitant]
     Active Substance: ERGOCALCIFEROL
     Dosage: 50000 IU, WEEKLY
     Route: 048
  2. METAMUCIL [Concomitant]
     Active Substance: PLANTAGO SEED
     Dosage: UNK, DAILY [UNK 0.52GRAM: TAKE 1 TABLESPOON EVERY DAY]
     Route: 048
  3. PREDNISONE. [Concomitant]
     Active Substance: PREDNISONE
     Dosage: 4 MG, DAILY (1MG: TAKE 4 TABLET EVERY DAY)
     Route: 048
  4. ATIVAN [Concomitant]
     Active Substance: LORAZEPAM
     Dosage: 0.5 MG, 2 TIMES EVERY DAY AS NEEDED
     Route: 048
  5. CALCIUM + VIT D [Concomitant]
     Active Substance: CALCIUM\VITAMIN D
     Dosage: UNK, DAILY ((1,250MG)-200 UNIT EVERY DAY)
     Route: 048
  6. AZULFIDINE [Concomitant]
     Active Substance: SULFASALAZINE
     Dosage: 1000 MG, 2X/DAY (500MG: TAKE 2 TABLET 2 TIMES EVERY DAY AFTER MEALS)
     Route: 048
  7. CYANOCOBALAMIN. [Concomitant]
     Active Substance: CYANOCOBALAMIN
     Dosage: 1 MG, CYCLIC (ONCE MONTH)
     Route: 030
  8. SULFAZINE [Concomitant]
     Active Substance: SULFASALAZINE
     Dosage: UNK
     Dates: start: 2012
  9. THIAMINE. [Concomitant]
     Active Substance: THIAMINE
     Dosage: 100 MG, CYCLIC (MONTHLY)
     Route: 030
  10. FOLIC ACID. [Concomitant]
     Active Substance: FOLIC ACID
     Dosage: 1 MG, DAILY (EVERY DAY)
     Route: 048
  11. PRILOSEC [Concomitant]
     Active Substance: OMEPRAZOLE MAGNESIUM
     Dosage: 20 MG, DAILY (BEFORE A MEAL)
     Route: 048
  12. NORCO [Concomitant]
     Active Substance: ACETAMINOPHEN\HYDROCODONE BITARTRATE
     Indication: PAIN
     Dosage: UNK,(HYDROCODONE BITARTRATE 5MG, PARACETAMOL 325MG) 2 TIMES EVERY DAY AS NEEDED
     Route: 048
  13. MS CONTIN [Concomitant]
     Active Substance: MORPHINE SULFATE
     Indication: PAIN MANAGEMENT
     Dosage: 15 MG, 2X/DAY
     Route: 048
  14. GABAPENTIN. [Concomitant]
     Active Substance: GABAPENTIN
     Dosage: 100 MG, 3X/DAY
     Route: 048
  15. NORVASC [Concomitant]
     Active Substance: AMLODIPINE BESYLATE
     Dosage: 5 MG, DAILY
     Route: 048
  16. XELJANZ [Suspect]
     Active Substance: TOFACITINIB CITRATE
     Indication: ARTHRITIS
     Dosage: 5 MG, 2X/DAY
     Dates: start: 201410
  17. FOSAMAX [Concomitant]
     Active Substance: ALENDRONATE SODIUM
     Dosage: (35/70MG) TAKE 1 TABLET BY ORAL ROUTE EVERY WEEK IN THE MORNING, AT LEAST 30 MIN BEFORE FIRST FOOD,
     Route: 048
  18. METHOTREXATE SODIUM. [Concomitant]
     Active Substance: METHOTREXATE SODIUM
     Dosage: UNK, WEEKLY [25MG/ML: INJECT 0.5 MILLILITER (12.5MG) BY INTRAMUSCULAR ROUTE EVERY WEEK]
     Route: 030
  19. PROMETHAZINE HCL [Concomitant]
     Active Substance: PROMETHAZINE HYDROCHLORIDE
     Dosage: 25 MG, EVERY 4-6 HOURS AS NEEDED
     Route: 048

REACTIONS (3)
  - Headache [Unknown]
  - Malaise [Unknown]
  - Vomiting [Unknown]
